FAERS Safety Report 6464710-7 (Version None)
Quarter: 2009Q4

REPORT INFORMATION
  Report Type: 
  Country: None (occurrence: None)
  Receive Date: 20091201
  Receipt Date: 20091120
  Transmission Date: 20100525
  Serious: Yes (Hospitalization)
  Sender: FDA-Public Use
  Company Number: SE-BRISTOL-MYERS SQUIBB COMPANY-13746300

PATIENT
  Age: 71 Year
  Sex: Male
  Weight: 108 kg

DRUGS (6)
  1. IRBESARTAN [Suspect]
     Indication: HYPERTENSION
     Dates: start: 20040420
  2. WARFARIN SODIUM [Suspect]
     Indication: PROPHYLAXIS
     Dates: start: 20040419
  3. METOPROLOL [Concomitant]
  4. FUROSEMIDE [Concomitant]
  5. RAMIPRIL [Concomitant]
  6. DIGOXIN [Concomitant]

REACTIONS (2)
  - FEMUR FRACTURE [None]
  - HAEMATOMA [None]
